FAERS Safety Report 26090213 (Version 2)
Quarter: 2025Q4

REPORT INFORMATION
  Report Type: Report from Study
  Country: US (occurrence: US)
  Receive Date: 20251126
  Receipt Date: 20251204
  Transmission Date: 20260118
  Serious: No
  Sender: NOVARTIS
  Company Number: US-002147023-NVSC2025US181604

PATIENT
  Age: 61 Year
  Sex: Female

DRUGS (2)
  1. RHAPSIDO [Suspect]
     Active Substance: REMIBRUTINIB
     Indication: Urticaria
     Dosage: 25 MG, BID
     Route: 065
     Dates: start: 20201120
  2. RHAPSIDO [Suspect]
     Active Substance: REMIBRUTINIB
     Dosage: 25 MG, BID
     Route: 048
     Dates: start: 20251124, end: 20251202

REACTIONS (2)
  - Contusion [Recovered/Resolved]
  - Cough [Unknown]

NARRATIVE: CASE EVENT DATE: 20251124
